FAERS Safety Report 23386898 (Version 1)
Quarter: 2024Q1

REPORT INFORMATION
  Report Type: Spontaneous
  Country: TR (occurrence: TR)
  Receive Date: 20240110
  Receipt Date: 20240110
  Transmission Date: 20240409
  Serious: Yes (Other)
  Sender: FDA-Public Use
  Company Number: TR-MLMSERVICE-20231227-4744927-1

PATIENT
  Age: 26 Year
  Sex: Female

DRUGS (10)
  1. CYCLOPHOSPHAMIDE [Suspect]
     Active Substance: CYCLOPHOSPHAMIDE
     Indication: Ewing^s sarcoma
     Dosage: VAC/IE PROTOCOL, FOUR CYCLES, REFUSED CHEMOTHERAPY
     Route: 065
  2. CYCLOPHOSPHAMIDE [Suspect]
     Active Substance: CYCLOPHOSPHAMIDE
     Dosage: VAC/IE PROTOCOL, TWO CYCLES
     Route: 065
  3. IFOSFAMIDE [Suspect]
     Active Substance: IFOSFAMIDE
     Indication: Ewing^s sarcoma
     Dosage: VAC/IE PROTOCOL, FOUR CYCLES, REFUSED CHEMOTHERAPY
     Route: 065
  4. IFOSFAMIDE [Suspect]
     Active Substance: IFOSFAMIDE
     Dosage: VAC/IE PROTOCOL, TWO CYCLES
     Route: 065
  5. VINCRISTINE [Suspect]
     Active Substance: VINCRISTINE
     Indication: Ewing^s sarcoma
     Dosage: VAC/IE PROTOCOL, FOUR CYCLES, REFUSED CHEMOTHERAPY
     Route: 065
  6. VINCRISTINE [Suspect]
     Active Substance: VINCRISTINE
     Dosage: VAC/IE PROTOCOL, TWO CYCLES
     Route: 065
  7. ETOPOSIDE [Suspect]
     Active Substance: ETOPOSIDE
     Indication: Ewing^s sarcoma
     Dosage: VAC/IE PROTOCOL, FOUR CYCLES, REFUSED CHEMOTHERAPY
     Route: 065
  8. ETOPOSIDE [Suspect]
     Active Substance: ETOPOSIDE
     Dosage: VAC/IE PROTOCOL, TWO CYCLES
     Route: 065
  9. ADRIAMYCIN [Suspect]
     Active Substance: DOXORUBICIN HYDROCHLORIDE
     Indication: Ewing^s sarcoma
     Dosage: VAC/IE PROTOCOL, FOUR CYCLES
     Route: 065
  10. ADRIAMYCIN [Suspect]
     Active Substance: DOXORUBICIN HYDROCHLORIDE
     Dosage: VAC/IE PROTOCOL, TWO CYCLES
     Route: 065

REACTIONS (3)
  - Blood disorder [Unknown]
  - Disease complication [Unknown]
  - Infection [Unknown]
